FAERS Safety Report 18242040 (Version 1)
Quarter: 2020Q3

REPORT INFORMATION
  Report Type: Spontaneous
  Country: FR (occurrence: FR)
  Receive Date: 20200908
  Receipt Date: 20200908
  Transmission Date: 20201103
  Serious: Yes (Hospitalization, Other)
  Sender: FDA-Public Use
  Company Number: FR-GLAXOSMITHKLINE-FR2020175804

PATIENT
  Age: 67 Year
  Sex: Female

DRUGS (5)
  1. LEVOTHYROX [Concomitant]
     Active Substance: LEVOTHYROXINE
     Indication: PRODUCT USED FOR UNKNOWN INDICATION
     Dosage: 75 UG, UNSPECIFIED
     Route: 048
  2. ZINNAT [Suspect]
     Active Substance: CEFUROXIME
     Indication: EAR INFECTION
     Dosage: 2 DF, QD
     Route: 048
     Dates: start: 20200104, end: 20200109
  3. OFLOCET [Suspect]
     Active Substance: OFLOXACIN
     Indication: EAR INFECTION
     Dosage: 2 DF, QD
     Route: 001
     Dates: start: 20200104, end: 20200109
  4. SOLUPRED (PREDNISOLONE METASULFOBENZOATE SODIQUE) [Suspect]
     Active Substance: PREDNISOLONE SODIUM METAZOATE
     Indication: EAR INFECTION
     Dosage: 3 DF, QD
     Route: 048
     Dates: start: 20200104, end: 20200109
  5. LERCAN [Concomitant]
     Active Substance: LERCANIDIPINE
     Indication: PRODUCT USED FOR UNKNOWN INDICATION
     Dosage: 1 DF, QD
     Route: 048

REACTIONS (1)
  - Pancreatitis acute [Recovered/Resolved]

NARRATIVE: CASE EVENT DATE: 20200109
